FAERS Safety Report 24125706 (Version 1)
Quarter: 2024Q3

REPORT INFORMATION
  Report Type: Spontaneous
  Country: IT (occurrence: IT)
  Receive Date: 20240723
  Receipt Date: 20240723
  Transmission Date: 20241016
  Serious: Yes (Hospitalization)
  Sender: MYLAN
  Company Number: IT-MYLANLABS-2024M1066600

PATIENT
  Age: 11 Year
  Sex: Male

DRUGS (16)
  1. OLANZAPINE [Suspect]
     Active Substance: OLANZAPINE
     Indication: Agitation
     Dosage: 5 MILLIGRAM, QD
     Route: 065
     Dates: start: 20230302
  2. OLANZAPINE [Suspect]
     Active Substance: OLANZAPINE
     Indication: Aggression
     Dosage: 10 MILLIGRAM, QD
     Route: 065
     Dates: start: 20230304
  3. OLANZAPINE [Suspect]
     Active Substance: OLANZAPINE
     Dosage: UNK, DOSE REDUCED
     Route: 065
  4. VALPROIC ACID [Concomitant]
     Active Substance: VALPROIC ACID
     Indication: Agitation
     Dosage: 20 MILLIGRAM/KILOGRAM, OVER 30 MIN, INTRAVENOUS BOLUS
     Route: 042
     Dates: start: 20230305
  5. VALPROIC ACID [Concomitant]
     Active Substance: VALPROIC ACID
     Indication: Aggression
     Dosage: 20 MILLIGRAM/KILOGRAM, 24 HOUR INFUSION
     Route: 065
  6. VALPROIC ACID [Concomitant]
     Active Substance: VALPROIC ACID
     Dosage: 15 MILLIGRAM/KILOGRAM, QD, INTRAVENOUS INFUSION
     Route: 042
  7. VALPROIC ACID [Concomitant]
     Active Substance: VALPROIC ACID
     Indication: Agitation
     Dosage: 500 MILLIGRAM, TID, EXTENDED RELEASE; THRICE A DAY
     Route: 048
     Dates: start: 20230308
  8. VALPROIC ACID [Concomitant]
     Active Substance: VALPROIC ACID
     Indication: Aggression
  9. HALOPERIDOL [Concomitant]
     Active Substance: HALOPERIDOL
     Indication: Agitation
     Dosage: UNK
     Route: 065
  10. HALOPERIDOL [Concomitant]
     Active Substance: HALOPERIDOL
     Indication: Aggression
  11. CHLORPROMAZINE [Concomitant]
     Active Substance: CHLORPROMAZINE
     Indication: Agitation
     Dosage: UNK
     Route: 065
  12. CHLORPROMAZINE [Concomitant]
     Active Substance: CHLORPROMAZINE
     Indication: Aggression
  13. RISPERIDONE [Concomitant]
     Active Substance: RISPERIDONE
     Indication: Agitation
     Dosage: 6 MILLIGRAM, QD
     Route: 065
  14. RISPERIDONE [Concomitant]
     Active Substance: RISPERIDONE
     Indication: Aggression
  15. LITHIUM SULFATE [Concomitant]
     Active Substance: LITHIUM SULFATE
     Indication: Agitation
     Dosage: UNK
     Route: 065
  16. LITHIUM SULFATE [Concomitant]
     Active Substance: LITHIUM SULFATE
     Indication: Aggression

REACTIONS (3)
  - Muscle rigidity [Unknown]
  - Salivary hypersecretion [Unknown]
  - Off label use [Unknown]
